FAERS Safety Report 5567641-X (Version None)
Quarter: 2007Q4

REPORT INFORMATION
  Report Type: 
  Country: None (occurrence: None)
  Receive Date: 20071214
  Receipt Date: 20071130
  Transmission Date: 20080405
  Serious: Yes (Hospitalization)
  Sender: FDA-Public Use
  Company Number: 2007SP004041

PATIENT
  Age: 73 Year
  Sex: Female

DRUGS (14)
  1. BROVANA [Suspect]
     Indication: CHRONIC OBSTRUCTIVE PULMONARY DISEASE
     Dosage: 15 UG/2ML; Q12H; INHALATION
     Route: 055
     Dates: start: 20070530
  2. XOPENEX [Suspect]
     Dosage: 1.25 MG/3ML; Q6H; INHALATION, 1.25 MG/3ML; Q3H; INHALATION
     Route: 055
     Dates: start: 20071112
  3. NAMENDA [Concomitant]
  4. ALBUTEROL SULFATE [Concomitant]
  5. TIOTROPIUM BROMIDE [Concomitant]
  6. CARBIDOPA [Concomitant]
  7. SINGULAIR [Concomitant]
  8. THEOPHYLLINE [Concomitant]
  9. JENUVIA [Concomitant]
  10. LISINOPRIL [Concomitant]
  11. OMEPRAZOLE [Concomitant]
  12. GLIPIZIDE [Concomitant]
  13. OXYGEN [Concomitant]
  14. PREDNISONE [Concomitant]

REACTIONS (3)
  - ASTHMA [None]
  - CHRONIC OBSTRUCTIVE PULMONARY DISEASE [None]
  - CONDITION AGGRAVATED [None]
